FAERS Safety Report 17490662 (Version 1)
Quarter: 2020Q1

REPORT INFORMATION
  Report Type: Spontaneous
  Country: US (occurrence: US)
  Receive Date: 20200303
  Receipt Date: 20200303
  Transmission Date: 20200409
  Serious: No
  Sender: FDA-Public Use
  Company Number: US-AKORN PHARMACEUTICALS-2019AKN00949

PATIENT
  Sex: Female

DRUGS (3)
  1. MYORISAN [Suspect]
     Active Substance: ISOTRETINOIN
     Dosage: 120 MG, 1X/DAY
     Dates: start: 20190415, end: 201904
  2. MYORISAN [Suspect]
     Active Substance: ISOTRETINOIN
     Dosage: 80 MG, 1X/DAY
     Dates: start: 201811, end: 20190415
  3. MYORISAN [Suspect]
     Active Substance: ISOTRETINOIN
     Indication: ACNE
     Dosage: UNK

REACTIONS (7)
  - Epistaxis [Unknown]
  - Muscle spasms [Unknown]
  - Nausea [Unknown]
  - Lip dry [Unknown]
  - Unevaluable event [Unknown]
  - Vomiting [Unknown]
  - Escherichia infection [Unknown]

NARRATIVE: CASE EVENT DATE: 201904
